FAERS Safety Report 10055233 (Version 3)
Quarter: 2014Q2

REPORT INFORMATION
  Report Type: Spontaneous
  Country: CA (occurrence: CA)
  Receive Date: 20140403
  Receipt Date: 20140523
  Transmission Date: 20141212
  Serious: Yes (Other)
  Sender: FDA-Public Use
  Company Number: CA-PFIZER INC-2011268343

PATIENT
  Age: 45 Year
  Sex: Female

DRUGS (12)
  1. ENBREL [Suspect]
     Dosage: 50 MG, WEEKLY
     Route: 065
  2. ENBREL [Suspect]
     Dosage: 25 MG, WEEKLY
     Route: 065
  3. ANTITHYMOCYTE IMMUNOGLOBULIN [Suspect]
     Dosage: UNK
     Route: 065
  4. RAPAMUNE [Suspect]
     Dosage: UNK
     Route: 065
  5. MYCOPHENOLATE MOFETIL [Suspect]
     Dosage: 1000 MG, 2 EVERY 1 DAY
     Route: 048
  6. PROGRAF [Suspect]
     Dosage: 2.5 MG, 2 EVERY 1 DAY
     Route: 048
  7. PROGRAF [Suspect]
     Dosage: UNK
     Route: 065
  8. PROGRAF [Suspect]
     Dosage: 3 MG, 2 EVERY 1 DAY
     Route: 048
  9. ZENAPAX [Suspect]
     Dosage: UNK
     Route: 042
  10. DACLIZUMAB [Suspect]
     Dosage: UNK
     Route: 042
  11. CELLCEPT [Suspect]
     Dosage: UNK
     Route: 065
  12. NEORAL [Suspect]
     Dosage: UNK
     Route: 065

REACTIONS (3)
  - Alopecia [Not Recovered/Not Resolved]
  - Transplant dysfunction [Not Recovered/Not Resolved]
  - Pneumonia [Not Recovered/Not Resolved]
